FAERS Safety Report 17153040 (Version 1)
Quarter: 2019Q4

REPORT INFORMATION
  Report Type: Spontaneous
  Country: FR (occurrence: FR)
  Receive Date: 20191213
  Receipt Date: 20191213
  Transmission Date: 20200122
  Serious: Yes (Hospitalization)
  Sender: FDA-Public Use
  Company Number: FR-MYLANLABS-2019M1122775

PATIENT
  Age: 78 Year
  Sex: Female
  Weight: 75 kg

DRUGS (1)
  1. METHOTREXATE MYLAN [Suspect]
     Active Substance: METHOTREXATE SODIUM
     Indication: CENTRAL NERVOUS SYSTEM LYMPHOMA
     Dosage: 4000 MILLIGRAM, QD
     Route: 041
     Dates: start: 20190726, end: 20190726

REACTIONS (3)
  - Overdose [Recovered/Resolved]
  - Acute kidney injury [Recovered/Resolved]
  - Incorrect disposal of product [Recovered/Resolved]

NARRATIVE: CASE EVENT DATE: 20190727
